FAERS Safety Report 12673715 (Version 3)
Quarter: 2016Q3

REPORT INFORMATION
  Report Type: Spontaneous
  Country: AU (occurrence: AU)
  Receive Date: 20160822
  Receipt Date: 20160926
  Transmission Date: 20161109
  Serious: Yes (Other)
  Sender: FDA-Public Use
  Company Number: AU-SA-2016SA151966

PATIENT
  Age: 51 Year
  Sex: Male

DRUGS (1)
  1. CLEXANE [Suspect]
     Active Substance: ENOXAPARIN SODIUM
     Indication: COAGULOPATHY
     Route: 065

REACTIONS (3)
  - Myocardial infarction [Unknown]
  - Injection site bruising [Unknown]
  - Product packaging issue [Unknown]

NARRATIVE: CASE EVENT DATE: 201601
